FAERS Safety Report 6395412-3 (Version None)
Quarter: 2009Q4

REPORT INFORMATION
  Report Type: 
  Country: None (occurrence: None)
  Receive Date: 20091006
  Receipt Date: 20090923
  Transmission Date: 20100525
  Serious: Yes (Other)
  Sender: FDA-Public Use
  Company Number: OPER20090161

PATIENT
  Age: 33 Year
  Sex: Male
  Weight: 87.0906 kg

DRUGS (10)
  1. OPANA ER [Suspect]
     Indication: PAIN
     Dosage: 60 MG QAM AND QPM, 30 MG AT MIDDAY, PER ORAL; BID, PER ORAL
     Route: 048
     Dates: start: 20090812, end: 20090823
  2. OPANA ER [Suspect]
     Indication: PAIN
     Dosage: 60 MG QAM AND QPM, 30 MG AT MIDDAY, PER ORAL; BID, PER ORAL
     Route: 048
     Dates: start: 20090824, end: 20090825
  3. OPANA ER [Suspect]
     Indication: PAIN
     Dosage: BID, PER ORAL
     Route: 048
     Dates: start: 20090825, end: 20090827
  4. OXYCODONE/ACETAMINOPHEN 10 MG/325 MG (PARACETAMOL, OXYCODONE HYDROCHLO [Suspect]
     Indication: BREAKTHROUGH PAIN
     Dosage: 10 TABLETS DAILY PRN, PER ORAL; 1-2 TABLETS TID PRN, PER ORAL
     Route: 048
     Dates: start: 19960101, end: 20090827
  5. OXYCODONE/ACETAMINOPHEN 10 MG/325 MG (PARACETAMOL, OXYCODONE HYDROCHLO [Suspect]
     Indication: BREAKTHROUGH PAIN
     Dosage: 10 TABLETS DAILY PRN, PER ORAL; 1-2 TABLETS TID PRN, PER ORAL
     Route: 048
     Dates: start: 19960101
  6. NEURONTIN [Suspect]
     Indication: FIBROMYALGIA
     Dosage: DAILY, THEN INCREASE DOSE EVERY 3 DAYS, PER ORAL
     Route: 048
     Dates: start: 20090825
  7. AMBIEN [Suspect]
     Dosage: AT NIGHT, PER ORAL
     Route: 048
     Dates: start: 19990101
  8. SINGLET (PHENYLEPHRINE HYDROCHLORIDE, PARACETAMOL, CHLORPHENAMINE MALE [Suspect]
     Indication: SEASONAL ALLERGY
     Dosage: 1 TABLET DAILY, PER ORAL
     Route: 048
     Dates: start: 19990101
  9. KLONOPIN [Suspect]
     Dosage: TID, PER ORAL
     Route: 048
     Dates: start: 20040101
  10. ZANAFLEX [Suspect]
     Indication: FIBROMYALGIA
     Dosage: BID, PER ORAL
     Route: 048
     Dates: start: 19960101

REACTIONS (14)
  - ANGER [None]
  - CONFUSIONAL STATE [None]
  - CONTUSION [None]
  - DEPRESSION SUICIDAL [None]
  - DRUG INEFFECTIVE [None]
  - FACIAL BONES FRACTURE [None]
  - HAEMOPTYSIS [None]
  - HEADACHE [None]
  - LOSS OF CONSCIOUSNESS [None]
  - NAUSEA [None]
  - PERIORBITAL HAEMATOMA [None]
  - ROAD TRAFFIC ACCIDENT [None]
  - SKIN LACERATION [None]
  - THINKING ABNORMAL [None]
